FAERS Safety Report 18438974 (Version 1)
Quarter: 2020Q4

REPORT INFORMATION
  Report Type: Spontaneous
  Country: IT (occurrence: IT)
  Receive Date: 20201029
  Receipt Date: 20201029
  Transmission Date: 20210114
  Serious: Yes (Other)
  Sender: FDA-Public Use
  Company Number: IT-TEVA-2020-IT-1841474

PATIENT
  Age: 65 Year
  Sex: Female
  Weight: 70 kg

DRUGS (1)
  1. CISPLATIN. [Suspect]
     Active Substance: CISPLATIN
     Indication: CERVIX CARCINOMA
     Dosage: 65MG
     Route: 042
     Dates: start: 20200324, end: 20200421

REACTIONS (1)
  - Haemoglobinuria [Recovering/Resolving]

NARRATIVE: CASE EVENT DATE: 20200403
